FAERS Safety Report 4855654-2 (Version None)
Quarter: 2005Q4

REPORT INFORMATION
  Report Type: 
  Country: None (occurrence: None)
  Receive Date: 20051216
  Receipt Date: 20050711
  Transmission Date: 20060501
  Serious: Yes (Death, Hospitalization)
  Sender: FDA-Public Use
  Company Number: PHBS2005CO09998

PATIENT
  Age: 80 Year
  Sex: Male

DRUGS (6)
  1. LAMISIL [Suspect]
     Indication: TINEA PEDIS
     Dosage: UNK, QD
     Route: 061
     Dates: start: 20050304
  2. EUGLUCON [Concomitant]
     Indication: DIABETES MELLITUS
  3. ALLOPURINOL [Concomitant]
     Indication: HYPERURICAEMIA
  4. LAMISIL [Suspect]
     Indication: NAIL TINEA
     Dosage: 250 MG, QD
     Route: 048
     Dates: start: 20050627
  5. AVANDIA [Suspect]
     Route: 065
  6. AVANDAMET [Suspect]
     Route: 065

REACTIONS (16)
  - AMMONIA INCREASED [None]
  - BLOOD ALKALINE PHOSPHATASE INCREASED [None]
  - BLOOD BILIRUBIN INCREASED [None]
  - CHOLESTASIS [None]
  - DEPRESSED LEVEL OF CONSCIOUSNESS [None]
  - DYSPNOEA [None]
  - GAMMA-GLUTAMYLTRANSFERASE INCREASED [None]
  - HEPATIC ENCEPHALOPATHY [None]
  - HEPATIC FAILURE [None]
  - HYPOGLYCAEMIA [None]
  - HYPOXIA [None]
  - JAUNDICE [None]
  - MULTI-ORGAN FAILURE [None]
  - PNEUMONIA [None]
  - RENAL IMPAIRMENT [None]
  - RESPIRATORY DISORDER [None]
